FAERS Safety Report 9850925 (Version 5)
Quarter: 2014Q2

REPORT INFORMATION
  Report Type: Spontaneous
  Country: AU (occurrence: AU)
  Receive Date: 20140128
  Receipt Date: 20140522
  Transmission Date: 20141212
  Serious: Yes (Life-Threatening, Hospitalization)
  Sender: FDA-Public Use
  Company Number: AU-ABBVIE-13X-008-1091093-00

PATIENT
  Age: 41 Year
  Sex: Male

DRUGS (6)
  1. VALPROATE SODIUM [Suspect]
     Indication: PRODUCT USED FOR UNKNOWN INDICATION
     Dosage: 35 GRAM(S) ; ONCE
     Route: 048
  2. CARBAMAZEPINE [Suspect]
     Indication: PRODUCT USED FOR UNKNOWN INDICATION
     Dosage: 10 GRAM (S) ; ONCE
     Route: 048
  3. FLUOXETINE [Suspect]
     Indication: PRODUCT USED FOR UNKNOWN INDICATION
     Dosage: 240 MILLIGRAM (S) ; ONCE
     Route: 048
  4. OXAZEPAM [Suspect]
     Indication: PRODUCT USED FOR UNKNOWN INDICATION
     Dosage: 375 GRAM (S) ; ONCE
     Route: 048
  5. QUETIAPINE FUMARATE [Suspect]
     Indication: PRODUCT USED FOR UNKNOWN INDICATION
     Dosage: 18 GRAM (S) ; ONCE
     Route: 048
  6. EPINEPHRINE [Suspect]
     Indication: VASOPLEGIA SYNDROME
     Dosage: IV NOS; 100 MICROGRAM (S) ; ONCE
     Route: 042

REACTIONS (11)
  - Vasoplegia syndrome [Recovering/Resolving]
  - Overdose [Unknown]
  - Coma [Unknown]
  - Hypotension [Unknown]
  - Electrocardiogram QT prolonged [Unknown]
  - Hyperdynamic left ventricle [Unknown]
  - Metabolic acidosis [Recovering/Resolving]
  - Blood lactic acid increased [Unknown]
  - Hypotension [Recovering/Resolving]
  - Condition aggravated [Unknown]
  - PCO2 decreased [Unknown]
